FAERS Safety Report 9108492 (Version 1)
Quarter: 2013Q1

REPORT INFORMATION
  Report Type: Spontaneous
  Country: GB (occurrence: GB)
  Receive Date: 20130222
  Receipt Date: 20130222
  Transmission Date: 20140127
  Serious: Yes (Hospitalization, Other)
  Sender: FDA-Public Use
  Company Number: GB-TEVA-386315ISR

PATIENT
  Age: 78 Year
  Sex: Female

DRUGS (2)
  1. CIPROFLOXACIN [Suspect]
     Indication: INFECTIVE EXACERBATION OF BRONCHIECTASIS
     Dosage: 1000 MILLIGRAM DAILY;
     Route: 048
     Dates: start: 20120910, end: 20120924
  2. CALCIUM [Interacting]

REACTIONS (3)
  - Treatment failure [Recovered/Resolved]
  - Infective exacerbation of bronchiectasis [Unknown]
  - Drug interaction [Unknown]
